FAERS Safety Report 9166217 (Version 1)
Quarter: 2013Q1

REPORT INFORMATION
  Report Type: Spontaneous
  Country: CA (occurrence: CA)
  Receive Date: 20130315
  Receipt Date: 20130315
  Transmission Date: 20140127
  Serious: Yes (Hospitalization)
  Sender: FDA-Public Use
  Company Number: CA-ASTRAZENECA-2013SE16161

PATIENT
  Age: 65 Year
  Sex: Female

DRUGS (2)
  1. TENORMIN [Suspect]
     Indication: HYPERTENSION
     Dosage: GENERIC
     Route: 048
     Dates: start: 2003
  2. TENORMIN [Suspect]
     Indication: HYPERTENSION
     Dosage: BRAND TENORMIN
     Route: 048

REACTIONS (3)
  - Breast pain [Recovered/Resolved]
  - Dyspnoea [Recovered/Resolved]
  - Rash generalised [Recovered/Resolved]
